FAERS Safety Report 7086901-7 (Version None)
Quarter: 2010Q4

REPORT INFORMATION
  Report Type: 
  Country: None (occurrence: None)
  Receive Date: 20101106
  Receipt Date: 20101008
  Transmission Date: 20110411
  Serious: Yes (Hospitalization, Other)
  Sender: FDA-Public Use
  Company Number: HQWYE591526AUG04

PATIENT
  Sex: Female
  Weight: 65.83 kg

DRUGS (2)
  1. PREMARIN [Suspect]
     Indication: MIGRAINE
     Dosage: UNKNOWN
     Route: 048
     Dates: start: 19850101, end: 20000501
  2. PROVERA [Suspect]
     Indication: MIGRAINE
     Dosage: UNKNOWN
     Dates: start: 19850101, end: 20000501

REACTIONS (1)
  - BREAST CANCER [None]
